FAERS Safety Report 6866651-X (Version None)
Quarter: 2010Q2

REPORT INFORMATION
  Report Type: 
  Country: None (occurrence: None)
  Receive Date: 20100603
  Receipt Date: 20090903
  Transmission Date: 20101027
  Serious: Yes (Other)
  Sender: FDA-Public Use
  Company Number: 2009265142

PATIENT
  Sex: Male
  Weight: 68 kg

DRUGS (1)
  1. COLESTIPOL HYDROCHLORIDE [Suspect]
     Indication: BLOOD CHOLESTEROL INCREASED
     Dates: start: 20090821

REACTIONS (4)
  - ABDOMINAL DISTENSION [None]
  - ARTHRALGIA [None]
  - FEELING ABNORMAL [None]
  - MYALGIA [None]
